FAERS Safety Report 7211058-9 (Version None)
Quarter: 2010Q4

REPORT INFORMATION
  Report Type: 
  Country: None (occurrence: None)
  Receive Date: 20101223
  Receipt Date: 20101213
  Transmission Date: 20110411
  Serious: Yes (Hospitalization)
  Sender: FDA-Public Use
  Company Number: 2010P1003316

PATIENT
  Age: 14 Year
  Sex: Female

DRUGS (11)
  1. METRONIDAZOLE [Suspect]
     Indication: BRONCHOPULMONARY ASPERGILLOSIS
  2. METRONIDAZOLE [Suspect]
     Indication: FEBRILE NEUTROPENIA
  3. VORICONAZOLE [Suspect]
     Indication: BRONCHOPULMONARY ASPERGILLOSIS
  4. VORICONAZOLE [Suspect]
     Indication: FEBRILE NEUTROPENIA
  5. MEROPENEM [Suspect]
     Indication: BRONCHOPULMONARY ASPERGILLOSIS
  6. MEROPENEM [Suspect]
     Indication: FEBRILE NEUTROPENIA
  7. CYTOSINE ARABINOSIDE (NO PREF. NAME) [Suspect]
     Indication: ACUTE MYELOID LEUKAEMIA
  8. IDARUBICIN (NO PREF. NAME) [Suspect]
     Indication: ACUTE MYELOID LEUKAEMIA
  9. ETOPOSIDE [Suspect]
     Indication: ACUTE MYELOID LEUKAEMIA
  10. CON MEDS [Concomitant]
  11. PREV MEDS [Concomitant]

REACTIONS (8)
  - CONVULSION [None]
  - HAEMOGLOBIN DECREASED [None]
  - MUSCULAR WEAKNESS [None]
  - NERVOUS SYSTEM DISORDER [None]
  - PLATELET COUNT DECREASED [None]
  - REVERSIBLE POSTERIOR LEUKOENCEPHALOPATHY SYNDROME [None]
  - VISUAL IMPAIRMENT [None]
  - WHITE BLOOD CELL COUNT DECREASED [None]
